FAERS Safety Report 12841450 (Version 2)
Quarter: 2016Q4

REPORT INFORMATION
  Report Type: Report from Study
  Country: US (occurrence: US)
  Receive Date: 20161012
  Receipt Date: 20161018
  Transmission Date: 20170207
  Serious: Yes (Other)
  Sender: FDA-Public Use
  Company Number: US-TEVA-700388USA

PATIENT
  Age: 70 Year
  Sex: Male

DRUGS (22)
  1. METHOTREXATE. [Suspect]
     Active Substance: METHOTREXATE
     Dosage: CYCLE 1 DAY 1 AND CYCLE 2 DAY 2
     Route: 037
     Dates: start: 20141205, end: 20150107
  2. INOTUZUMAB OZOGAMICIN [Suspect]
     Active Substance: INOTUZUMAB OZOGAMICIN
     Dosage: 1.8MG/M2 C1 DAY 3
     Route: 042
     Dates: start: 20141207, end: 20141207
  3. PROTONIX [Concomitant]
     Active Substance: PANTOPRAZOLE SODIUM
     Dosage: 40 MILLIGRAM DAILY;
     Route: 048
  4. SPIRONOLACTONE. [Concomitant]
     Active Substance: SPIRONOLACTONE
     Dosage: 25 MILLIGRAM DAILY;
     Route: 048
  5. CYCLOPHOSPHAMIDE. [Suspect]
     Active Substance: CYCLOPHOSPHAMIDE
     Dosage: 300 MG/M2 DAILY; DAYS 1-4
     Route: 042
     Dates: start: 20141205, end: 20150126
  6. LASIX [Concomitant]
     Active Substance: FUROSEMIDE
     Dosage: 20 MILLIGRAM DAILY; HALF OF 40MG TABLET
     Route: 048
  7. VINCRISTINE [Suspect]
     Active Substance: VINCRISTINE
     Dosage: CYCLE 1: IV 2MG ON DAYS 1 (DAY 8 DOSE HELD DUE OT ELEVATES BILI)
     Route: 042
     Dates: start: 20141205, end: 20150126
  8. INOTUZUMAB OZOGAMICIN [Suspect]
     Active Substance: INOTUZUMAB OZOGAMICIN
     Dosage: ON CYCLE 2 DAY 3
     Route: 042
     Dates: start: 20150109, end: 20150109
  9. ASPIRIN. [Concomitant]
     Active Substance: ASPIRIN
     Dosage: 81 MILLIGRAM DAILY;
     Route: 048
  10. POTASSIUM CHLORIDE. [Concomitant]
     Active Substance: POTASSIUM CHLORIDE
     Dosage: 40 MILLIEQUIVALENTS DAILY;
     Route: 048
  11. MESNA. [Suspect]
     Active Substance: MESNA
     Dosage: CYCLIC CONTINUOUS INFUSIN ON DAYS 1-3
     Route: 042
     Dates: start: 20141205, end: 20150126
  12. METHOTREXATE. [Suspect]
     Active Substance: METHOTREXATE
     Dosage: 200 MG/M2 OVER 22 HOURS ON DAY
     Route: 042
     Dates: start: 20150106, end: 20150108
  13. CYTARABINE. [Suspect]
     Active Substance: CYTARABINE
     Dosage: 100MG ON CYCLE 1 DAY 7 (CYCLE 2 DAY 21)
     Route: 037
     Dates: start: 20141205, end: 20150126
  14. LANTUS [Concomitant]
     Active Substance: INSULIN GLARGINE
     Dosage: 20 IU DAILY (20 UNITS 1 INJECTION DAILY)
     Route: 058
  15. INSULIN, REGULAR [Concomitant]
     Active Substance: INSULIN NOS
     Dosage: 100 IU/ML (100 UNITS/PER CUBIC CENTERS 1 INJECTION TID)
     Route: 058
  16. METHOTREXATE. [Suspect]
     Active Substance: METHOTREXATE
     Dosage: OVER 2 HOURS ON CYCLE 2 DAY 1
     Route: 042
     Dates: start: 20150106, end: 20150106
  17. CYTARABINE. [Suspect]
     Active Substance: CYTARABINE
     Dosage: EVERY 12 HOURS ON DAYS 2 AND 3
     Route: 042
     Dates: start: 20150107, end: 20150110
  18. RITUXIMAB [Suspect]
     Active Substance: RITUXIMAB
     Dosage: ON DAYS 2 AND 8; CYCLE 2: IV 375MG/M2 ON DAYS 2 AND 7
     Route: 042
     Dates: start: 20141206, end: 20150112
  19. ALBUTEROL W/IPRATROPIUM [Concomitant]
     Active Substance: ALBUTEROL\IPRATROPIUM
     Indication: DYSPNOEA
     Dosage: 3 CUBIC CENTIMETERS INHALATION
     Route: 055
  20. LEXAPRO [Concomitant]
     Active Substance: ESCITALOPRAM OXALATE
     Dosage: 10 MILLIGRAM DAILY;
     Route: 048
  21. FLOMAX [Concomitant]
     Active Substance: TAMSULOSIN HYDROCHLORIDE
  22. METHYLPREDNISOLONE. [Suspect]
     Active Substance: METHYLPREDNISOLONE
     Dosage: 80 MILLIGRAM DAILY; DAYS 1-3 (CYCLE 2)
     Route: 042
     Dates: start: 20150106, end: 20150109

REACTIONS (1)
  - Venoocclusive liver disease [Not Recovered/Not Resolved]

NARRATIVE: CASE EVENT DATE: 20150318
